FAERS Safety Report 10390095 (Version 1)
Quarter: 2014Q1

REPORT INFORMATION
  Report Type: Spontaneous
  Country: US (occurrence: None)
  Receive Date: 20140306
  Receipt Date: 20140306
  Transmission Date: 20141002
  Serious: Yes (Other)
  Sender: FDA-Public Use
  Company Number: 163-21880-13011919

PATIENT
  Age: 65 Year
  Sex: Male

DRUGS (20)
  1. REVLIMID (LENALIDOMIDE)(25 MILLIGRAM, CAPSULES) [Suspect]
     Indication: PLASMA CELL MYELOMA
     Route: 048
     Dates: start: 201110, end: 2012
  2. VELCADE(BORTEZOMIB)(UNKNOWN) [Concomitant]
  3. DEXAMETHASONE(DEXAMETHASONE)(UNKNOWN) [Concomitant]
  4. ALLOPURINOL(ALLOPURINOL)(TABLETS) [Concomitant]
  5. APRISO(MESALAZINE)(CAPSULES) [Concomitant]
  6. CALCIUM-VITAMIN D(LEKOVIT CA)(TABLETS) [Concomitant]
  7. FLUTICASONE PROP IONATE(FLUTICASONE PROPIONATE)(SUSPENSION) [Concomitant]
  8. GEMFIBROZIL(GEMFIBROZIL)(TABLETS) [Concomitant]
  9. GLIMEPIRIDE(GLIMEPIRIDE)(TABLETS) [Concomitant]
  10. LACTOBACILLUS CASEI(LACTOBACILLUS CASEI)(TABLETS) [Concomitant]
  11. MAXIMUM D3(COLECALCIFEROL)(UNKNOWN) [Concomitant]
  12. METFORMIN HCL(METFORMIN HYDROCHLORIDE)(TABLETS) [Concomitant]
  13. MULTI VITAMIN MENS(MULTIVITAMINS)(TABLETS) [Concomitant]
  14. OMEPRAZOLE(OMEPRAZOLE)(CAPSULES) [Concomitant]
  15. PROCHLORPERAZINE MALEATE(PROCHLORPERAZINE MALEATE)(TABLETS) [Concomitant]
  16. SPECTRAVITE(OTHER THERAPEUTIC PRODUCTS)(TABLETS) [Concomitant]
  17. SYNTHROID(LEVOTHYROXINE SODIUM)(TABLETS) [Concomitant]
  18. HYPERBARIC THERAPY(OTHER THERAPEUTIC PRODUCTS)(UNKNOWN) [Concomitant]
  19. METOPROLOL TARTRATE(METOPROLOL TARTRATE)(TABLETS) [Concomitant]
  20. VITAMIN B12(CYANOCOBALAMIN)(TABLETS) [Concomitant]

REACTIONS (3)
  - Osteomyelitis [None]
  - Deep vein thrombosis [None]
  - Pancytopenia [None]
